FAERS Safety Report 9008166 (Version 1)
Quarter: 2012Q4

REPORT INFORMATION
  Report Type: Spontaneous
  Country: FR (occurrence: None)
  Receive Date: 20121227
  Receipt Date: 20121227
  Transmission Date: 20130627
  Serious: Yes (Other)
  Sender: FDA-Public Use
  Company Number: 7182121

PATIENT
  Age: 62 Year
  Sex: Male

DRUGS (3)
  1. LEVOTHYROX [Suspect]
     Indication: DRUG USE FOR UNKNOWN INDICATION
     Dosage: 1 in 1 D
     Route: 048
     Dates: start: 20070903, end: 20091222
  2. LEVOTHYROX [Suspect]
     Indication: DRUG USE FOR UNKNOWN INDICATION
     Dosage: 1 in 1 D
     Route: 048
     Dates: start: 20120128
  3. LEVOTHYROXINE [Suspect]
     Dosage: 1 in 1 D
     Route: 048
     Dates: start: 20091223, end: 20120127

REACTIONS (1)
  - Chronic obstructive pulmonary disease [None]
